FAERS Safety Report 17539443 (Version 4)
Quarter: 2020Q2

REPORT INFORMATION
  Report Type: Spontaneous
  Country: US (occurrence: US)
  Receive Date: 20200313
  Receipt Date: 20200616
  Transmission Date: 20200713
  Serious: Yes (Other)
  Sender: FDA-Public Use
  Company Number: US-PFIZER INC-2020110618

PATIENT
  Age: 56 Year
  Sex: Female

DRUGS (20)
  1. VITAMINS NOS [Concomitant]
     Active Substance: VITAMINS
     Dosage: UNK
     Dates: start: 20191105
  2. XELJANZ XR [Suspect]
     Active Substance: TOFACITINIB CITRATE
     Dosage: 11 MG, 1X/DAY
     Route: 048
     Dates: start: 202002
  3. LISINOPRIL. [Concomitant]
     Active Substance: LISINOPRIL
     Dosage: 10 MG, DAILY
     Route: 048
     Dates: start: 20191105
  4. SAVELLA [Concomitant]
     Active Substance: MILNACIPRAN HYDROCHLORIDE
     Dosage: 50 MG, 2X/DAY
     Route: 048
     Dates: start: 20190709
  5. XELJANZ XR [Suspect]
     Active Substance: TOFACITINIB CITRATE
     Indication: RHEUMATOID ARTHRITIS
     Dosage: 11 MG, DAILY
     Route: 048
     Dates: start: 20200209
  6. RESTASIS [Concomitant]
     Active Substance: CYCLOSPORINE
     Dosage: 1 GTT, 2X/DAY UNK(INSTILL 1 DROP BY OPHTHALMIC ROUTE EVERY 12 HOURS INTO AFFECTED AREA)
     Route: 047
     Dates: start: 20181108
  7. VOLTAREN [Concomitant]
     Active Substance: DICLOFENAC SODIUM
     Dosage: 2 G, 4X/DAY [APPLY 2 GRAM BY TOPICAL ROUTE 4 TIMES EVERY DAY TO THE AFFECTED AREA(S)]
     Route: 061
     Dates: start: 20200131
  8. METHOTREXATE. [Concomitant]
     Active Substance: METHOTREXATE
     Dosage: UNK
  9. XELJANZ XR [Suspect]
     Active Substance: TOFACITINIB CITRATE
     Dosage: 11 MG, DAILY
     Route: 048
     Dates: start: 20200414
  10. DILTIAZEM. [Concomitant]
     Active Substance: DILTIAZEM
     Dosage: 180 MG, 2X/DAY
     Route: 048
     Dates: start: 20171010
  11. FOLIC ACID. [Concomitant]
     Active Substance: FOLIC ACID
     Dosage: 1 MG, WEEKLY [(TAKE 1 TABLET BY ORAL ROUTE EVERY DAY BUT FRIDAYS)]
     Route: 048
     Dates: start: 20190104
  12. REMICADE [Concomitant]
     Active Substance: INFLIXIMAB
     Dosage: 5 MG/KG, UNK ( (ROUND UP TO NEAREST VIAL) EVERY 8 WEEKS)
     Route: 042
     Dates: start: 20190709
  13. LIPODERM [Concomitant]
     Active Substance: BACLOFEN\CYCLOBENZAPRINE\DICLOFENAC\GABAPENTIN\TETRACAINE
     Dosage: 1 DF, 2X/DAY(APPLY 1 PATCH BY TRANSDERMAL ROUTE 2 TIMES EVERY DAY (MAY WEAR UP TO 12HOURS.) )
     Route: 062
     Dates: start: 20191104
  14. SYSTANE (HYPROMELLOSE 2910 (4000 MPA.S)) [Concomitant]
     Active Substance: HYPROMELLOSE 2910 (4000 MPA.S)
     Dosage: UNK( 0.4 %-0.3 % EYE DROPS IN A DROPPERETTE)
     Dates: start: 20181108
  15. REMICADE [Concomitant]
     Active Substance: INFLIXIMAB
     Dosage: 5 MG/KG, UNK  (ROUND UP TO NEAREST VIAL) EVERY 7 WEEKS)
     Route: 042
     Dates: start: 20190917
  16. VITAMIN D3 [Concomitant]
     Active Substance: CHOLECALCIFEROL
     Dosage: UNK
     Dates: start: 20181108
  17. MEDROL [Concomitant]
     Active Substance: METHYLPREDNISOLONE
     Dosage: 4 MG, UNK(TAKE BY ORAL ROUTE AS DIRECTED)
     Route: 048
     Dates: start: 20200206
  18. PROTONIX [OMEPRAZOLE] [Concomitant]
     Active Substance: OMEPRAZOLE
     Dosage: 40 MG, DAILY
     Route: 048
     Dates: start: 20180419
  19. REMICADE [Concomitant]
     Active Substance: INFLIXIMAB
     Dosage: 3 MG/KG, UNK(DOSE 3MG/KG (ROUND UP TO NEAREST VIAL) O, 2, 6 WKS, THEN EVERY 8 WKS)
     Route: 042
     Dates: start: 20190329
  20. PROBIOTIC [BIFIDOBACTERIUM LACTIS] [Concomitant]
     Active Substance: BIFIDOBACTERIUM ANIMALIS LACTIS
     Dosage: UNK
     Dates: start: 20191105

REACTIONS (7)
  - Bipolar I disorder [Unknown]
  - Sinusitis [Unknown]
  - Infection [Unknown]
  - Fatigue [Unknown]
  - Back pain [Unknown]
  - Depressed mood [Unknown]
  - Condition aggravated [Unknown]
